FAERS Safety Report 9677965 (Version 1)
Quarter: 2013Q4

REPORT INFORMATION
  Report Type: Spontaneous
  Country: US (occurrence: US)
  Receive Date: 20131108
  Receipt Date: 20131108
  Transmission Date: 20140711
  Serious: Yes (Other)
  Sender: FDA-Public Use
  Company Number: US-BAYER-2013-132533

PATIENT
  Age: 69 Year
  Sex: Male

DRUGS (3)
  1. XOFIGO [Suspect]
     Indication: METASTASES TO SPINE
     Dosage: UNK
     Route: 042
     Dates: start: 20130730
  2. XOFIGO [Suspect]
     Indication: METASTASES TO BONE
     Dosage: UNK
     Route: 042
     Dates: start: 20130830
  3. XOFIGO [Suspect]
     Indication: METASTASES TO SPINE
     Dosage: UNK
     Route: 042
     Dates: start: 20131004

REACTIONS (9)
  - Inflammation [None]
  - Tongue paralysis [None]
  - Hypoaesthesia oral [None]
  - Neuralgia [None]
  - Photophobia [None]
  - Tongue spasm [None]
  - Speech disorder [None]
  - Eating disorder [None]
  - Headache [None]
